FAERS Safety Report 10377888 (Version 2)
Quarter: 2014Q3

REPORT INFORMATION
  Report Type: Spontaneous
  Country: US (occurrence: US)
  Receive Date: 20140812
  Receipt Date: 20140828
  Transmission Date: 20150326
  Serious: No
  Sender: FDA-Public Use
  Company Number: US-009507513-1408USA005035

PATIENT
  Sex: Female
  Weight: 90.7 kg

DRUGS (1)
  1. NEXPLANON [Suspect]
     Active Substance: ETONOGESTREL
     Indication: CONTRACEPTION
     Dosage: 68MG/ONE ROD
     Route: 059
     Dates: start: 20140612, end: 20140805

REACTIONS (7)
  - Purulence [Unknown]
  - Medical device complication [Recovered/Resolved]
  - Implant site swelling [Recovering/Resolving]
  - Staphylococcal infection [Unknown]
  - Implant site erythema [Recovering/Resolving]
  - Implant site pain [Recovering/Resolving]
  - Implant site induration [Unknown]

NARRATIVE: CASE EVENT DATE: 2014
